FAERS Safety Report 5113309-3 (Version None)
Quarter: 2006Q3

REPORT INFORMATION
  Report Type: 
  Country: None (occurrence: None)
  Receive Date: 20060920
  Receipt Date: 20060906
  Transmission Date: 20061208
  Serious: Yes (Hospitalization, Other)
  Sender: FDA-Public Use
  Company Number: HQWYE834314APR06

PATIENT
  Age: 62 Year
  Sex: Female
  Weight: 62.6 kg

DRUGS (21)
  1. RAPAMUNE [Suspect]
     Indication: PROPHYLAXIS AGAINST TRANSPLANT REJECTION
     Dosage: SEE IMAGE
     Route: 048
     Dates: start: 20060404, end: 20060405
  2. RAPAMUNE [Suspect]
     Indication: PROPHYLAXIS AGAINST TRANSPLANT REJECTION
     Dosage: SEE IMAGE
     Route: 048
     Dates: start: 20060406, end: 20060410
  3. RAPAMUNE [Suspect]
     Indication: PROPHYLAXIS AGAINST TRANSPLANT REJECTION
     Dosage: SEE IMAGE
     Route: 048
     Dates: start: 20060413
  4. CELLCEPT [Concomitant]
  5. PREDNISONE [Concomitant]
  6. SIMULECT [Concomitant]
  7. TOPROL-XL [Concomitant]
  8. CARDURA [Concomitant]
  9. CLONIDINE [Concomitant]
  10. INSULIN [Concomitant]
  11. LIPITOR [Concomitant]
  12. BACTRIM [Concomitant]
  13. MYCELEX [Concomitant]
  14. IBERET-FOLIC (FERROUS SULFATE/FOLIC ACID/VITAMINS NOS) [Concomitant]
  15. PROTONIX [Concomitant]
  16. ISOSORBIDE [Concomitant]
  17. SIMETHICONE (DIMETICONE, ACTIVATED) [Concomitant]
  18. DARVOCET-N 50 [Concomitant]
  19. ZELNORM [Concomitant]
  20. COLACE (DOCUSATE SODIUM) [Concomitant]
  21. KLONOPIN [Concomitant]

REACTIONS (3)
  - BLOOD CREATINE INCREASED [None]
  - IMMUNOSUPPRESSANT DRUG LEVEL INCREASED [None]
  - JUGULAR VEIN THROMBOSIS [None]
